FAERS Safety Report 8587525-2 (Version None)
Quarter: 2012Q3

REPORT INFORMATION
  Report Type: 
  Country: None (occurrence: None)
  Receive Date: 20120810
  Receipt Date: 20120807
  Transmission Date: 20120928
  Serious: Yes (Death, Hospitalization)
  Sender: FDA-Public Use
  Company Number: TR-ABBOTT-10P-161-0638806-00

PATIENT
  Age: 19 Year
  Sex: Female

DRUGS (4)
  1. STREPTOMYCIN [Concomitant]
     Indication: CHOREA
     Dates: start: 20090622
  2. TETRADOX [Concomitant]
     Indication: BRUCELLOSIS
     Dates: start: 20090622
  3. VALPROATE SODIUM [Suspect]
     Indication: CHOREA
     Dates: start: 20090622
  4. ACETAMINOPHEN [Concomitant]
     Dates: start: 20090622

REACTIONS (6)
  - ENCEPHALOPATHY [None]
  - RESPIRATORY ALKALOSIS [None]
  - LACTIC ACIDOSIS [None]
  - METABOLIC ACIDOSIS [None]
  - DRUG RASH WITH EOSINOPHILIA AND SYSTEMIC SYMPTOMS [None]
  - ACUTE HEPATIC FAILURE [None]
